FAERS Safety Report 4288791-4 (Version None)
Quarter: 2004Q1

REPORT INFORMATION
  Report Type: 
  Country: None (occurrence: None)
  Receive Date: 20040205
  Receipt Date: 20040128
  Transmission Date: 20041129
  Serious: Yes (Hospitalization, Other)
  Sender: FDA-Public Use
  Company Number: 2004-06602

PATIENT
  Age: 63 Year
  Sex: Male

DRUGS (6)
  1. ADEFOVIR DIPIVOXIL KIT [Suspect]
     Indication: HEPATITIS B
     Dosage: 10 MG QD PO
     Route: 048
     Dates: start: 20031008
  2. ADEFOVIR DIPIVOXIL KIT [Suspect]
     Indication: HEPATITIS B
     Dosage: 10 MG QD PO
     Route: 048
     Dates: start: 20031003, end: 20031005
  3. ADEFOVIR DIPIVOXIL KIT [Suspect]
     Indication: HEPATITIS B
     Dosage: 10 MG QD PO
     Route: 048
     Dates: start: 20030929, end: 20030930
  4. FUROSEMIDE [Concomitant]
  5. CIPROFLOXACIN [Concomitant]
  6. LACTULOSE [Concomitant]

REACTIONS (7)
  - ASCITES [None]
  - DYSPNOEA [None]
  - HYPONATRAEMIA [None]
  - OEDEMA PERIPHERAL [None]
  - PERITONITIS BACTERIAL [None]
  - PLEURAL EFFUSION [None]
  - RENAL IMPAIRMENT [None]
